FAERS Safety Report 7358573-5 (Version None)
Quarter: 2011Q1

REPORT INFORMATION
  Report Type: 
  Country: None (occurrence: None)
  Receive Date: 20110317
  Receipt Date: 20110308
  Transmission Date: 20110831
  Serious: Yes (Hospitalization, Disabling)
  Sender: FDA-Public Use
  Company Number: US-MERCK-1011USA01990

PATIENT
  Age: 74 Year
  Sex: Female

DRUGS (1)
  1. FOSAMAX [Suspect]
     Indication: OSTEOPOROSIS
     Route: 048
     Dates: start: 19990405

REACTIONS (9)
  - FEMUR FRACTURE [None]
  - GINGIVAL INFECTION [None]
  - LOWER LIMB FRACTURE [None]
  - OEDEMA PERIPHERAL [None]
  - JAW DISORDER [None]
  - CYSTITIS [None]
  - DRUG HYPERSENSITIVITY [None]
  - WRIST FRACTURE [None]
  - OSTEONECROSIS OF JAW [None]
